FAERS Safety Report 4787320-6 (Version None)
Quarter: 2005Q3

REPORT INFORMATION
  Report Type: 
  Country: None (occurrence: None)
  Receive Date: 20050926
  Receipt Date: 20050805
  Transmission Date: 20060218
  Serious: No
  Sender: FDA-Public Use
  Company Number: 216267

PATIENT
  Age: 39 Year
  Sex: Female

DRUGS (4)
  1. AVASTIN [Suspect]
     Dosage: 368 MG, INTRAVENOUS
     Route: 042
     Dates: start: 20050620
  2. CAMPTOSAR [Concomitant]
  3. DECADRON [Concomitant]
  4. ANZEMET [Concomitant]

REACTIONS (3)
  - DYSPHONIA [None]
  - FLUSHING [None]
  - OEDEMA PERIPHERAL [None]
